FAERS Safety Report 6608901-0 (Version None)
Quarter: 2010Q1

REPORT INFORMATION
  Report Type: 
  Country: None (occurrence: None)
  Receive Date: 20100301
  Receipt Date: 20100219
  Transmission Date: 20100710
  Serious: Yes (Hospitalization)
  Sender: FDA-Public Use
  Company Number: IT-PFIZER INC-2010022495

PATIENT
  Age: 65 Year
  Sex: Female

DRUGS (9)
  1. CAMPTOSAR [Suspect]
     Indication: RECTAL CANCER
     Dosage: 305 MG, CYCLIC
     Route: 042
     Dates: start: 20091124, end: 20100109
  2. AVASTIN [Suspect]
     Indication: RECTAL CANCER
     Dosage: 340 MG, CYCLIC
     Route: 042
     Dates: start: 20091124, end: 20100109
  3. ELOXATIN [Suspect]
     Indication: RECTAL CANCER
     Dosage: 145 MG, CYCLIC
     Route: 042
     Dates: start: 20091115, end: 20100110
  4. XELODA [Suspect]
     Dosage: 3300 MG, CYCLIC
     Route: 048
     Dates: start: 20091125, end: 20100115
  5. EMEND [Concomitant]
     Indication: PROPHYLAXIS OF NAUSEA AND VOMITING
     Dosage: 125 MG
     Route: 048
     Dates: start: 20091124, end: 20100109
  6. SOLDESAM [Concomitant]
     Indication: PROPHYLAXIS OF NAUSEA AND VOMITING
     Dosage: 8  MG
     Route: 042
     Dates: start: 20091124, end: 20100110
  7. ANTRA [Concomitant]
     Dosage: 40  MG
     Route: 042
     Dates: start: 20091124, end: 20100110
  8. PALONOSETRON HYDROCHLORIDE [Concomitant]
     Indication: PROPHYLAXIS OF NAUSEA AND VOMITING
     Dosage: 250 UG
     Route: 042
     Dates: start: 20091124, end: 20100109
  9. ATROPINE SULFATE [Concomitant]
     Dosage: 0.25 UG
     Route: 058
     Dates: start: 20091124, end: 20100109

REACTIONS (6)
  - ASTHENIA [None]
  - DECREASED APPETITE [None]
  - DIARRHOEA [None]
  - RENAL FAILURE ACUTE [None]
  - VOMITING [None]
  - WEIGHT DECREASED [None]
